FAERS Safety Report 5722890-2 (Version None)
Quarter: 2008Q2

REPORT INFORMATION
  Report Type: 
  Country: None (occurrence: None)
  Receive Date: 20080425
  Receipt Date: 20080414
  Transmission Date: 20081010
  Serious: Yes (Life-Threatening, Hospitalization, Other)
  Sender: FDA-Public Use
  Company Number: 019723

PATIENT
  Age: 43 Year
  Sex: Female

DRUGS (7)
  1. SEASONALE [Suspect]
     Indication: CONTRACEPTION
     Dosage: ORAL
     Route: 048
     Dates: start: 20070101
  2. EXTENDED PHENYTOIN SODIUM [Suspect]
     Indication: CONVULSION
  3. LAMICTAL [Suspect]
     Indication: COMPLEX PARTIAL SEIZURES
     Dosage: 300 MG, BID, ORAL
     Route: 048
     Dates: start: 20060101
  4. QUANESE (QUANESE) [Suspect]
     Indication: HORMONE THERAPY
  5. LEVETIRACETAM (LEVETIRACEAM) [Suspect]
     Indication: COMPLEX PARTIAL SEIZURES
  6. ZONISAMIDE [Suspect]
     Indication: CONVULSION
     Dosage: 200 MG
  7. FUROSEMIDE [Concomitant]

REACTIONS (9)
  - ANTICONVULSANT DRUG LEVEL DECREASED [None]
  - COMPLEX PARTIAL SEIZURES [None]
  - DIZZINESS [None]
  - DRUG INTERACTION [None]
  - GRAND MAL CONVULSION [None]
  - HEADACHE [None]
  - MOUTH INJURY [None]
  - SOMNOLENCE [None]
  - STATUS EPILEPTICUS [None]
